FAERS Safety Report 22227472 (Version 7)
Quarter: 2023Q4

REPORT INFORMATION
  Report Type: Spontaneous
  Country: US (occurrence: US)
  Receive Date: 20230419
  Receipt Date: 20231115
  Transmission Date: 20240109
  Serious: No
  Sender: FDA-Public Use
  Company Number: US-002147023-NVSC2023US089354

PATIENT
  Sex: Male

DRUGS (5)
  1. TAFINLAR [Suspect]
     Active Substance: DABRAFENIB MESYLATE
     Indication: Metastatic malignant melanoma
     Dosage: 75 MG, BID (EVERY 12 HOURS, 75 MG 2 TABS, 150 MG)
     Route: 048
     Dates: start: 20230315
  2. MEKINIST [Suspect]
     Active Substance: TRAMETINIB DIMETHYL SULFOXIDE
     Indication: Metastatic malignant melanoma
     Dosage: 2 MG, QD (DAILY)
     Route: 048
     Dates: start: 20230315
  3. ZOFRAN [Concomitant]
     Active Substance: ONDANSETRON HYDROCHLORIDE
     Indication: Nausea
     Dosage: 4 MG, BID
     Route: 048
     Dates: start: 20230903
  4. IRON [Concomitant]
     Active Substance: IRON
     Indication: Product used for unknown indication
     Dosage: 355 MG, QD
     Route: 048
  5. COMPAZINE [Concomitant]
     Active Substance: PROCHLORPERAZINE MALEATE
     Indication: Nausea
     Dosage: 500 G (2 PO, IDO)
     Route: 048
     Dates: start: 20230903

REACTIONS (8)
  - Joint stiffness [Unknown]
  - Urticaria [Unknown]
  - Muscle strain [Unknown]
  - Discomfort [Unknown]
  - Gastrointestinal pain [Unknown]
  - Bowel movement irregularity [Unknown]
  - Alopecia [Unknown]
  - Constipation [Unknown]
